FAERS Safety Report 14951864 (Version 1)
Quarter: 2018Q3

REPORT INFORMATION
  Report Type: Spontaneous
  Country: US (occurrence: US)
  Receive Date: 20180530
  Receipt Date: 20180530
  Transmission Date: 20181010
  Serious: No
  Sender: FDA-Public Use
  Company Number: US-WEST-WARD PHARMACEUTICALS CORP.-US-H14001-18-02777

PATIENT
  Sex: Male

DRUGS (1)
  1. TESTOSTERONE CYPIONATE 10 ML [Suspect]
     Active Substance: TESTOSTERONE CYPIONATE
     Indication: BLOOD TESTOSTERONE DECREASED
     Route: 058
     Dates: start: 20180217

REACTIONS (3)
  - Poor quality drug administered [None]
  - Intentional product use issue [Unknown]
  - Product deposit [None]

NARRATIVE: CASE EVENT DATE: 2018
